FAERS Safety Report 4511814-1 (Version None)
Quarter: 2004Q4

REPORT INFORMATION
  Report Type: 
  Country: None (occurrence: None)
  Receive Date: 20041123
  Receipt Date: 20041110
  Transmission Date: 20050328
  Serious: Yes (Other)
  Sender: FDA-Public Use
  Company Number: 2004091210

PATIENT
  Age: 66 Year
  Sex: Male
  Weight: 122.4712 kg

DRUGS (8)
  1. LIPITOR [Suspect]
     Indication: BLOOD CHOLESTEROL INCREASED
     Dosage: 20 MG (20 MG, 1 IN 1 D), ORAL
     Route: 048
  2. CLONIDINE [Concomitant]
  3. POTASSIUM (POTASSIUM) [Concomitant]
  4. FUROSEMIDE [Concomitant]
  5. TOCOPHEROL CONCENTRATE CAP [Concomitant]
  6. MULTIPLE VITAMINS (ASCORBIC ACID, ERGOCALCIFEROL, FOLIC ACID, RETINIOL [Concomitant]
  7. ATENOLOL [Concomitant]
  8. GLYBURIDE [Concomitant]

REACTIONS (2)
  - OSTEOARTHRITIS [None]
  - PAIN [None]
